FAERS Safety Report 13319702 (Version 2)
Quarter: 2018Q1

REPORT INFORMATION
  Report Type: Spontaneous
  Country: US (occurrence: US)
  Receive Date: 20170309
  Receipt Date: 20180223
  Transmission Date: 20180508
  Serious: No
  Sender: FDA-Public Use
  Company Number: US-TEVA-727457ACC

PATIENT
  Age: 56 Year
  Sex: Male

DRUGS (8)
  1. MIRTAZAPINE. [Concomitant]
     Active Substance: MIRTAZAPINE
  2. TRAMADOL. [Concomitant]
     Active Substance: TRAMADOL
  3. TRAZODONE [Concomitant]
     Active Substance: TRAZODONE HYDROCHLORIDE
  4. OXYCONTIN [Concomitant]
     Active Substance: OXYCODONE HYDROCHLORIDE
  5. BUSPIRONE [Suspect]
     Active Substance: BUSPIRONE HYDROCHLORIDE
     Indication: ANXIETY DISORDER
     Dates: start: 20161103, end: 20161109
  6. CYMBALTA [Concomitant]
     Active Substance: DULOXETINE HYDROCHLORIDE
  7. POTASSSIUM [Concomitant]
  8. MAGNESIUM [Concomitant]
     Active Substance: MAGNESIUM

REACTIONS (6)
  - Aggression [Unknown]
  - Thinking abnormal [Unknown]
  - Agitation [Unknown]
  - Nervousness [Unknown]
  - Tremor [Unknown]
  - Muscle tightness [Unknown]
